FAERS Safety Report 23043281 (Version 3)
Quarter: 2024Q2

REPORT INFORMATION
  Report Type: Report from Study
  Country: IT (occurrence: IT)
  Receive Date: 20231009
  Receipt Date: 20240613
  Transmission Date: 20240716
  Serious: Yes (Other)
  Sender: FDA-Public Use
  Company Number: IT-TAKEDA-2023TUS083308

PATIENT
  Age: 23 Year
  Sex: Female
  Weight: 43 kg

DRUGS (28)
  1. TEDUGLUTIDE [Suspect]
     Active Substance: TEDUGLUTIDE
     Indication: Short-bowel syndrome
     Dosage: 2.4 MILLILITER, QD
     Route: 042
     Dates: start: 202003, end: 20230821
  2. TEDUGLUTIDE [Suspect]
     Active Substance: TEDUGLUTIDE
     Indication: Short-bowel syndrome
     Dosage: 2.4 MILLILITER, QD
     Route: 042
     Dates: start: 202003, end: 20230821
  3. TEDUGLUTIDE [Suspect]
     Active Substance: TEDUGLUTIDE
     Indication: Short-bowel syndrome
     Dosage: 2.4 MILLILITER, QD
     Route: 042
     Dates: start: 202003, end: 20230821
  4. TEDUGLUTIDE [Suspect]
     Active Substance: TEDUGLUTIDE
     Indication: Short-bowel syndrome
     Dosage: 2.4 MILLILITER, QD
     Route: 042
     Dates: start: 202003, end: 20230821
  5. CITRAK [Concomitant]
     Indication: Nutritional supplementation
     Dosage: UNK, BID
     Route: 048
     Dates: start: 20210412, end: 202110
  6. CITRAK [Concomitant]
     Dosage: UNK, TID
     Route: 048
     Dates: start: 20211011
  7. CITRAK [Concomitant]
     Dosage: UNK, QD
     Route: 048
     Dates: start: 20230921
  8. DICODRAL [Concomitant]
     Dosage: 60 MILLIGRAM, QD
     Route: 048
     Dates: start: 20210310
  9. ASCORBIC ACID\FERRIC PYROPHOSPHATE [Concomitant]
     Active Substance: ASCORBIC ACID\FERRIC PYROPHOSPHATE
     Dosage: 1 INTERNATIONAL UNIT, QD
     Route: 048
     Dates: start: 20210412
  10. CHOLECALCIFEROL [Concomitant]
     Active Substance: CHOLECALCIFEROL
     Indication: Vitamin supplementation
     Dosage: 100000 INTERNATIONAL UNIT, MONTHLY
     Route: 030
     Dates: start: 2021
  11. CHOLECALCIFEROL [Concomitant]
     Active Substance: CHOLECALCIFEROL
     Dosage: UNK, MONTHLY
     Route: 048
     Dates: start: 20230921
  12. Dobetin [Concomitant]
     Indication: Nutritional supplementation
     Dosage: 1000 MICROGRAM
     Route: 030
     Dates: start: 20210204
  13. Dobetin [Concomitant]
     Dosage: UNK, MONTHLY
     Route: 048
     Dates: start: 20230921
  14. EVION [Concomitant]
     Active Substance: .ALPHA.-TOCOPHEROL ACETATE
     Dosage: 1 INTERNATIONAL UNIT, BID
     Route: 048
     Dates: start: 20210204, end: 20220308
  15. CETIRIZINE HYDROCHLORIDE [Concomitant]
     Active Substance: CETIRIZINE HYDROCHLORIDE
     Dosage: 10 MILLIGRAM, QD
     Route: 048
     Dates: start: 2021
  16. BETAMETHASONE SODIUM PHOSPHATE [Concomitant]
     Active Substance: BETAMETHASONE SODIUM PHOSPHATE
     Dosage: 1 MILLIGRAM
     Route: 048
     Dates: start: 2021
  17. CALCIUM CARBONATE [Concomitant]
     Active Substance: CALCIUM CARBONATE
     Indication: Nutritional supplementation
     Dosage: 1000 MILLIGRAM, BID
     Route: 048
     Dates: start: 2021
  18. CALCIUM CARBONATE [Concomitant]
     Active Substance: CALCIUM CARBONATE
     Dosage: 1000 MILLIGRAM, BID
     Route: 048
     Dates: start: 20230921
  19. IMODIUM [Concomitant]
     Active Substance: LOPERAMIDE HYDROCHLORIDE
     Dosage: 1 INTERNATIONAL UNIT, BID
     Route: 048
     Dates: start: 20210310
  20. FLAGYL [Concomitant]
     Active Substance: METRONIDAZOLE\METRONIDAZOLE HYDROCHLORIDE
     Dosage: UNK UNK, BID
     Route: 065
     Dates: start: 202110, end: 20211119
  21. FLAGYL [Concomitant]
     Active Substance: METRONIDAZOLE\METRONIDAZOLE HYDROCHLORIDE
     Dosage: UNK
     Route: 065
     Dates: start: 20211119
  22. THIAMINE HYDROCHLORIDE [Concomitant]
     Active Substance: THIAMINE HYDROCHLORIDE
     Dosage: UNK
     Route: 065
     Dates: start: 202110, end: 20211119
  23. SODIUM BICARBONATE [Concomitant]
     Active Substance: SODIUM BICARBONATE
     Dosage: 500 MILLIGRAM
     Route: 065
     Dates: start: 202110, end: 20211119
  24. SODIUM BICARBONATE [Concomitant]
     Active Substance: SODIUM BICARBONATE
     Dosage: 1 DOSAGE FORM, BID
     Route: 048
     Dates: start: 20211221, end: 20220308
  25. SODIUM BICARBONATE [Concomitant]
     Active Substance: SODIUM BICARBONATE
     Dosage: UNK UNK, Q6HR
     Route: 048
     Dates: start: 20220309
  26. Folina [Concomitant]
     Dosage: UNK UNK, QD
     Route: 048
     Dates: start: 20211221, end: 20220308
  27. ROVIGON [Concomitant]
     Dosage: 1 DOSAGE FORM, BID
     Route: 048
     Dates: start: 20220308
  28. QUESTRAN [Concomitant]
     Active Substance: CHOLESTYRAMINE
     Dosage: UNK UNK, BID
     Route: 048
     Dates: start: 20211222

REACTIONS (2)
  - Abortion spontaneous [Recovered/Resolved]
  - Pregnancy [Recovered/Resolved]

NARRATIVE: CASE EVENT DATE: 20230828
